FAERS Safety Report 7080648-9 (Version None)
Quarter: 2010Q4

REPORT INFORMATION
  Report Type: 
  Country: None (occurrence: None)
  Receive Date: 20101103
  Receipt Date: 20101021
  Transmission Date: 20110411
  Serious: Yes (Hospitalization)
  Sender: FDA-Public Use
  Company Number: US-ELI_LILLY_AND_COMPANY-US201010005940

PATIENT
  Age: 85 Year

DRUGS (1)
  1. FORTEO [Suspect]

REACTIONS (1)
  - SURGERY [None]
